FAERS Safety Report 7561312-6 (Version None)
Quarter: 2011Q2

REPORT INFORMATION
  Report Type: 
  Country: None (occurrence: None)
  Receive Date: 20110621
  Receipt Date: 20110127
  Transmission Date: 20111010
  Serious: No
  Sender: FDA-Public Use
  Company Number: US-ASTRAZENECA-2010SE58371

PATIENT
  Age: 47 Year
  Sex: Male

DRUGS (5)
  1. SEREVENT [Concomitant]
  2. PAXIL [Concomitant]
  3. PROZAC [Concomitant]
  4. PULMICORT FLEXHALER [Suspect]
     Route: 055
  5. SINGULAIR [Concomitant]

REACTIONS (8)
  - HEART RATE INCREASED [None]
  - RASH [None]
  - THYROID FUNCTION TEST ABNORMAL [None]
  - PRURITUS [None]
  - DIZZINESS [None]
  - DYSPHONIA [None]
  - BLISTER [None]
  - LETHARGY [None]
